FAERS Safety Report 11860273 (Version 3)
Quarter: 2016Q3

REPORT INFORMATION
  Report Type: Report from Study
  Country: SE (occurrence: SE)
  Receive Date: 20151222
  Receipt Date: 20160701
  Transmission Date: 20161109
  Serious: Yes (Death, Hospitalization, Disabling, Other)
  Sender: FDA-Public Use
  Company Number: SE-SHIRE-SE201516649

PATIENT
  Age: 18 Year
  Sex: Male

DRUGS (1)
  1. IDURSULFASE [Suspect]
     Active Substance: IDURSULFASE
     Indication: MUCOPOLYSACCHARIDOSIS II
     Dosage: 0.48 MG/KG, 1X/WEEK
     Route: 041
     Dates: start: 20060927

REACTIONS (2)
  - Respiratory failure [Fatal]
  - Spinal decompression [Recovered/Resolved]

NARRATIVE: CASE EVENT DATE: 20120208
